FAERS Safety Report 13961596 (Version 3)
Quarter: 2017Q4

REPORT INFORMATION
  Report Type: Spontaneous
  Country: JP (occurrence: JP)
  Receive Date: 20170912
  Receipt Date: 20171002
  Transmission Date: 20180320
  Serious: Yes (Hospitalization, Other)
  Sender: FDA-Public Use
  Company Number: JP-PFIZER INC-2017343557

PATIENT
  Age: 83 Year
  Sex: Male

DRUGS (15)
  1. ADALAT CC [Concomitant]
     Active Substance: NIFEDIPINE
     Dosage: 20 MG, 1X/DAY
  2. TRAMAL [Suspect]
     Active Substance: TRAMADOL
     Indication: POST HERPETIC NEURALGIA
     Dosage: 2 TABLETS, 1X/DAY
     Route: 048
     Dates: start: 20150923, end: 201607
  3. TAISIROL [Concomitant]
     Dosage: 20 MG, 2X/DAY
  4. SELBEX [Concomitant]
     Active Substance: TEPRENONE
     Dosage: 50 MG, 3X/DAY
  5. MICARDIS [Concomitant]
     Active Substance: TELMISARTAN
     Dosage: 20 MG, 1X/DAY
  6. NEXIUM [Concomitant]
     Active Substance: ESOMEPRAZOLE MAGNESIUM
     Dosage: 20 MG, 1X/DAY
  7. NORITREN [Suspect]
     Active Substance: NORTRIPTYLINE HYDROCHLORIDE
     Indication: POST HERPETIC NEURALGIA
     Dosage: 4 TABLETS, 1X/DAY
     Route: 048
     Dates: start: 20150923, end: 201607
  8. LUPRAC [Concomitant]
     Active Substance: TORSEMIDE
     Dosage: 2 MG, 1X/DAY
  9. RIVAROXABAN [Concomitant]
     Active Substance: RIVAROXABAN
     Indication: ANTICOAGULANT THERAPY
     Dosage: UNK
  10. LYRICA [Suspect]
     Active Substance: PREGABALIN
     Indication: POST HERPETIC NEURALGIA
     Dosage: 250 MG, DAILY (ONE 75MG CAP IN THE AM, TWO 75-MG CAPS (150MG) IN THE PM, ONE 25MG CAP ONCE DAILY
     Route: 048
     Dates: start: 201509, end: 201607
  11. AMITIZA [Concomitant]
     Active Substance: LUBIPROSTONE
     Indication: CONSTIPATION
     Dosage: 2 CAPSULES, 1X/DAY
     Route: 048
     Dates: start: 20150923, end: 201607
  12. TRAZENTA [Concomitant]
     Active Substance: LINAGLIPTIN
     Dosage: 5 MG, 1X/DAY
  13. GOSHAJINKIGAN [Concomitant]
     Active Substance: HERBALS
     Indication: PAIN
     Dosage: 2.5 G, 1X/DAY
     Route: 048
     Dates: start: 20150923, end: 201607
  14. SUNRYTHM [Concomitant]
     Active Substance: PILSICAINIDE HYDROCHLORIDE
     Dosage: 50 MG, 3X/DAY
  15. XARELTO [Concomitant]
     Active Substance: RIVAROXABAN
     Dosage: 10 MG, 1X/DAY

REACTIONS (4)
  - Mixed dementia [Unknown]
  - Drug ineffective [Recovered/Resolved]
  - Dizziness [Recovering/Resolving]
  - Fall [Recovered/Resolved]

NARRATIVE: CASE EVENT DATE: 201607
